FAERS Safety Report 7563636-5 (Version None)
Quarter: 2011Q2

REPORT INFORMATION
  Report Type: 
  Country: None (occurrence: None)
  Receive Date: 20110621
  Receipt Date: 20110621
  Transmission Date: 20111010
  Serious: Yes (Life-Threatening, Hospitalization)
  Sender: FDA-Public Use
  Company Number: None

PATIENT
  Age: 77 Year
  Sex: Female
  Weight: 39.9165 kg

DRUGS (21)
  1. MULTI-VITAMIN [Concomitant]
  2. VITAMIN D [Concomitant]
  3. VITAMIN B COMPLEX CAP [Concomitant]
  4. ASPIRIN [Concomitant]
  5. LEFLUNOMIDE [Suspect]
     Indication: RHEUMATOID ARTHRITIS
     Dosage: 1 EACH DAY ORAL
     Route: 048
     Dates: start: 20100915, end: 20101215
  6. FISH OIL [Concomitant]
  7. SIMVASTATIN [Concomitant]
  8. ASCORBIC ACID [Concomitant]
  9. BIOTIN [Concomitant]
  10. PRASTERONE [Concomitant]
  11. VITAMIN E [Concomitant]
  12. LISINOPRIL AND HYDROCHLOROTHIAZIDE [Concomitant]
  13. FOLIC ACID [Concomitant]
  14. PRILOSEC [Concomitant]
  15. COQ10 [Concomitant]
  16. GINGER [Concomitant]
  17. CALCIUM CITRACAL [Concomitant]
  18. TYLENOL-500 [Concomitant]
  19. TRIP. MAGNESIUM COMP. [Concomitant]
  20. GLUCOSAMINE [Concomitant]
  21. MELOXICAM [Concomitant]

REACTIONS (11)
  - ABNORMAL BEHAVIOUR [None]
  - ABNORMAL DREAMS [None]
  - BLOOD SODIUM DECREASED [None]
  - PAIN [None]
  - ECONOMIC PROBLEM [None]
  - DEAFNESS [None]
  - CRYING [None]
  - WEIGHT DECREASED [None]
  - DECREASED APPETITE [None]
  - APPARENT DEATH [None]
  - HAEMOGLOBIN DECREASED [None]
